FAERS Safety Report 24115903 (Version 2)
Quarter: 2024Q3

REPORT INFORMATION
  Report Type: Spontaneous
  Country: IT (occurrence: IT)
  Receive Date: 20240721
  Receipt Date: 20240724
  Transmission Date: 20241016
  Serious: Yes (Death, Other)
  Sender: GENMAB
  Company Number: IT-ABBVIE-5842710

PATIENT
  Sex: Female

DRUGS (1)
  1. EPCORITAMAB [Suspect]
     Active Substance: EPCORITAMAB
     Indication: Product used for unknown indication
     Dosage: UNK
     Route: 058

REACTIONS (3)
  - Disease progression [Fatal]
  - Bacterial sepsis [Unknown]
  - Liver disorder [Unknown]
